FAERS Safety Report 15159722 (Version 5)
Quarter: 2019Q3

REPORT INFORMATION
  Report Type: Report from Study
  Country: CA (occurrence: CA)
  Receive Date: 20180718
  Receipt Date: 20190927
  Transmission Date: 20191004
  Serious: Yes (Other)
  Sender: FDA-Public Use
  Company Number: CA-SA-2016SA187321

PATIENT
  Age: 39 Year
  Sex: Female

DRUGS (10)
  1. REACTINE [CETIRIZINE HYDROCHLORIDE] [Concomitant]
     Active Substance: CETIRIZINE HYDROCHLORIDE
     Indication: PREMEDICATION
     Dosage: 10 MG,UNK
     Route: 048
     Dates: start: 20161006, end: 20161011
  2. PARACETAMOL [Concomitant]
     Active Substance: ACETAMINOPHEN
     Indication: PREMEDICATION
     Dosage: 1 G,PRN
     Route: 048
     Dates: start: 20161006
  3. ALEMTUZUMAB [Suspect]
     Active Substance: ALEMTUZUMAB
     Dosage: 12 MG, QD
     Route: 041
     Dates: start: 20161011, end: 20161011
  4. MEFENAMIC ACID. [Concomitant]
     Active Substance: MEFENAMIC ACID
     Indication: PREMEDICATION
     Dosage: 400 MG,PRN
     Route: 048
     Dates: start: 20161006
  5. ZOPICLONE [Concomitant]
     Active Substance: ZOPICLONE
     Indication: SLEEP DISORDER
     Dosage: 7.5 MG,PRN
     Route: 048
     Dates: start: 20161006
  6. DIPHENHYDRAMINE HYDROCHLORIDE. [Suspect]
     Active Substance: DIPHENHYDRAMINE HYDROCHLORIDE
     Indication: PREMEDICATION
     Dosage: 25 MG,UNK
     Route: 048
     Dates: start: 20161006
  7. ALEMTUZUMAB [Suspect]
     Active Substance: ALEMTUZUMAB
     Indication: RELAPSING-REMITTING MULTIPLE SCLEROSIS
     Dosage: 12 MG, QD
     Route: 041
     Dates: start: 20161006, end: 20161007
  8. ZANTAC [Concomitant]
     Active Substance: RANITIDINE HYDROCHLORIDE
     Indication: PREMEDICATION
     Dosage: 150 MG,PRN
     Route: 048
     Dates: start: 20161006, end: 20161011
  9. ACICLOVIR [Concomitant]
     Active Substance: ACYCLOVIR
     Indication: PREMEDICATION
     Dosage: 200 MG,UNK
     Route: 048
     Dates: start: 20161006
  10. METHYLPREDNISOLONE. [Concomitant]
     Active Substance: METHYLPREDNISOLONE
     Indication: PREMEDICATION
     Dosage: 1 G,UNK
     Route: 042
     Dates: start: 20161006, end: 20161011

REACTIONS (63)
  - Eye pain [Recovering/Resolving]
  - Neck pain [Recovered/Resolved]
  - Neutrophil count increased [Recovered/Resolved]
  - Dyspepsia [Recovered/Resolved]
  - Lymphocyte percentage decreased [Recovered/Resolved]
  - Dyspnoea [Recovered/Resolved]
  - Asthenia [Recovered/Resolved]
  - Blood urine present [Recovered/Resolved]
  - Headache [Recovered/Resolved]
  - Rash erythematous [Recovered/Resolved]
  - Myalgia [Recovered/Resolved]
  - Oropharyngeal pain [Recovered/Resolved]
  - Paraesthesia [Recovered/Resolved]
  - White blood cells urine positive [Recovered/Resolved]
  - Vulvovaginal mycotic infection [Not Recovered/Not Resolved]
  - Streptococcus test positive [Recovered/Resolved]
  - Pain [Not Recovered/Not Resolved]
  - Cough [Recovering/Resolving]
  - Rash [Recovered/Resolved]
  - Hypotension [Recovered/Resolved]
  - Poikilocytosis [Not Recovered/Not Resolved]
  - Polychromasia [Not Recovered/Not Resolved]
  - Elliptocytosis [Not Recovered/Not Resolved]
  - Glucose urine present [Recovered/Resolved]
  - Urinary sediment present [Not Recovered/Not Resolved]
  - Hypoaesthesia [Recovered/Resolved]
  - Anxiety [Recovered/Resolved]
  - White blood cell count decreased [Recovered/Resolved]
  - Menorrhagia [Recovered/Resolved]
  - Muscular weakness [Recovering/Resolving]
  - Gingival swelling [Recovered/Resolved]
  - Eosinophil percentage increased [Recovered/Resolved]
  - Eosinophil count increased [Recovered/Resolved]
  - Microcytosis [Not Recovered/Not Resolved]
  - Lymphocyte count decreased [Recovered/Resolved]
  - Pyrexia [Recovering/Resolving]
  - Viral infection [Unknown]
  - Urinary tract infection [Not Recovered/Not Resolved]
  - Exposure during pregnancy [Unknown]
  - Mean cell volume decreased [Not Recovered/Not Resolved]
  - Hyperkeratosis [Not Recovered/Not Resolved]
  - Arthralgia [Recovered/Resolved]
  - Haematocrit decreased [Recovered/Resolved]
  - Bacterial test positive [Recovered/Resolved]
  - Thalassaemia alpha [Unknown]
  - Menorrhagia [Not Recovered/Not Resolved]
  - Peripheral coldness [Recovered/Resolved]
  - Urine analysis abnormal [Not Recovered/Not Resolved]
  - Haemoglobin decreased [Recovered/Resolved]
  - Anxiety [Not Recovered/Not Resolved]
  - Herpes zoster [Not Recovered/Not Resolved]
  - Red blood cell count increased [Recovered/Resolved]
  - Mean cell haemoglobin decreased [Not Recovered/Not Resolved]
  - Neutrophil percentage increased [Recovered/Resolved]
  - Oral pain [Recovered/Resolved]
  - Hypochromasia [Not Recovered/Not Resolved]
  - Urine leukocyte esterase positive [Recovered/Resolved]
  - Nausea [Recovered/Resolved]
  - Multiple sclerosis [Not Recovered/Not Resolved]
  - Hypoaesthesia [Not Recovered/Not Resolved]
  - Wheezing [Recovered/Resolved]
  - Urticaria [Recovered/Resolved]
  - Fall [Unknown]

NARRATIVE: CASE EVENT DATE: 20161006
